FAERS Safety Report 20714187 (Version 3)
Quarter: 2022Q2

REPORT INFORMATION
  Report Type: Spontaneous
  Country: US (occurrence: US)
  Receive Date: 20220415
  Receipt Date: 20220603
  Transmission Date: 20220721
  Serious: No
  Sender: FDA-Public Use
  Company Number: US-BIOGEN-2022BI01114426

PATIENT
  Sex: Female

DRUGS (21)
  1. AVONEX [Suspect]
     Active Substance: INTERFERON BETA-1A
     Indication: Multiple sclerosis
     Route: 065
     Dates: start: 19960802, end: 20160819
  2. AVONEX [Suspect]
     Active Substance: INTERFERON BETA-1A
     Route: 065
     Dates: start: 20170927
  3. AVONEX [Suspect]
     Active Substance: INTERFERON BETA-1A
     Route: 065
     Dates: start: 199607
  4. AVONEX [Suspect]
     Active Substance: INTERFERON BETA-1A
  5. AVONEX [Suspect]
     Active Substance: INTERFERON BETA-1A
  6. AVONEX [Suspect]
     Active Substance: INTERFERON BETA-1A
  7. AVONEX [Suspect]
     Active Substance: INTERFERON BETA-1A
  8. AVONEX [Suspect]
     Active Substance: INTERFERON BETA-1A
  9. AVONEX [Suspect]
     Active Substance: INTERFERON BETA-1A
  10. AVONEX [Suspect]
     Active Substance: INTERFERON BETA-1A
  11. AVONEX [Suspect]
     Active Substance: INTERFERON BETA-1A
  12. AVONEX [Suspect]
     Active Substance: INTERFERON BETA-1A
  13. AVONEX [Suspect]
     Active Substance: INTERFERON BETA-1A
  14. AVONEX PEN [Suspect]
     Active Substance: INTERFERON BETA-1A
     Indication: Multiple sclerosis
     Route: 065
     Dates: start: 20160607
  15. AVONEX PEN [Suspect]
     Active Substance: INTERFERON BETA-1A
  16. AVONEX PEN [Suspect]
     Active Substance: INTERFERON BETA-1A
  17. AVONEX PEN [Suspect]
     Active Substance: INTERFERON BETA-1A
  18. AVONEX [Suspect]
     Active Substance: INTERFERON BETA-1A
     Indication: Multiple sclerosis
     Route: 065
  19. AVONEX [Suspect]
     Active Substance: INTERFERON BETA-1A
  20. AVONEX [Suspect]
     Active Substance: INTERFERON BETA-1A
  21. AVONEX [Suspect]
     Active Substance: INTERFERON BETA-1A

REACTIONS (12)
  - Ankle fracture [Not Recovered/Not Resolved]
  - Tremor [Not Recovered/Not Resolved]
  - Gait disturbance [Not Recovered/Not Resolved]
  - Decreased appetite [Not Recovered/Not Resolved]
  - Balance disorder [Not Recovered/Not Resolved]
  - Hypersomnia [Not Recovered/Not Resolved]
  - Musculoskeletal disorder [Unknown]
  - Hypoaesthesia [Not Recovered/Not Resolved]
  - Paraesthesia [Not Recovered/Not Resolved]
  - Asthenia [Not Recovered/Not Resolved]
  - Pain [Not Recovered/Not Resolved]
  - Depression [Not Recovered/Not Resolved]

NARRATIVE: CASE EVENT DATE: 20200101
